FAERS Safety Report 7283040-7 (Version None)
Quarter: 2011Q1

REPORT INFORMATION
  Report Type: 
  Country: None (occurrence: None)
  Receive Date: 20110209
  Receipt Date: 20101215
  Transmission Date: 20110831
  Serious: Yes (Hospitalization, Disabling)
  Sender: FDA-Public Use
  Company Number: BR-BAYER-BR-2006-006336

PATIENT
  Sex: Male

DRUGS (5)
  1. ATORVASTATIN [Concomitant]
     Indication: BLOOD CHOLESTEROL ABNORMAL
     Dosage: 1 DF, UNK
     Route: 048
  2. BETAFERON [Suspect]
     Indication: PAIN
     Dosage: UNK MIU, UNK
     Route: 058
     Dates: start: 20060220
  3. UNCODEABLE ^UNCLASSIFIABLE^ [Concomitant]
     Indication: BLOOD DISORDER
     Dosage: 100 MG, UNK
     Route: 048
     Dates: start: 20051201
  4. ATORVASTATIN [Concomitant]
     Indication: BLOOD TRIGLYCERIDES ABNORMAL
  5. DIOVAN [Concomitant]
     Indication: HYPERTENSION
     Dosage: 1 DF, UNK
     Route: 048
     Dates: start: 20061201

REACTIONS (11)
  - HYPERHIDROSIS [None]
  - MUSCULAR WEAKNESS [None]
  - INJECTION SITE PAIN [None]
  - NASOPHARYNGITIS [None]
  - PYREXIA [None]
  - PAIN [None]
  - MALAISE [None]
  - NASAL CONGESTION [None]
  - INFLUENZA [None]
  - COUGH [None]
  - CHILLS [None]
